FAERS Safety Report 7911878-9 (Version None)
Quarter: 2011Q4

REPORT INFORMATION
  Report Type: 
  Country: None (occurrence: None)
  Receive Date: 20111114
  Receipt Date: 20111111
  Transmission Date: 20120403
  Serious: Yes (Other)
  Sender: FDA-Public Use
  Company Number: GB-TEVA-308812ISR

PATIENT
  Age: 32 Year
  Sex: Female

DRUGS (4)
  1. FLUTICASONE PROPIONATE/SALMETEROL [Suspect]
     Indication: ASTHMA
     Dosage: 250/50 MG, QID
     Route: 055
  2. FLUTICASONE PROPIONATE [Suspect]
     Indication: ASTHMA
     Dosage: 250 UG, QID
  3. AMITRIPTYLINE HCL [Suspect]
     Indication: ASTHMA
     Dosage: UNK
  4. MONTELUKAST SODIUM [Suspect]
     Indication: ASTHMA
     Dosage: UNK

REACTIONS (2)
  - DRUG INEFFECTIVE [None]
  - ASTHMA [None]
